FAERS Safety Report 8053161-X (Version None)
Quarter: 2011Q4

REPORT INFORMATION
  Report Type: 
  Country: None (occurrence: None)
  Receive Date: 20111213
  Receipt Date: 20110802
  Transmission Date: 20120403
  Serious: No
  Sender: FDA-Public Use
  Company Number: 2011SP036325

PATIENT
  Age: 50 Year
  Sex: Female

DRUGS (3)
  1. DEPAKOTE ER [Concomitant]
  2. SAPHRIS [Suspect]
     Indication: BIPOLAR DISORDER
     Dosage: 5 MG;BID;SL ; 10 MG;BID;SL
     Route: 060
     Dates: start: 20110712
  3. SAPHRIS [Suspect]
     Indication: BIPOLAR DISORDER
     Dosage: 5 MG;BID;SL ; 10 MG;BID;SL
     Route: 060
     Dates: end: 20110828

REACTIONS (1)
  - PALPITATIONS [None]
